FAERS Safety Report 7439199-1 (Version None)
Quarter: 2011Q2

REPORT INFORMATION
  Report Type: 
  Country: None (occurrence: None)
  Receive Date: 20110427
  Receipt Date: 20110415
  Transmission Date: 20111010
  Serious: Yes (Hospitalization)
  Sender: FDA-Public Use
  Company Number: US-ELI_LILLY_AND_COMPANY-US201011006186

PATIENT
  Sex: Female

DRUGS (4)
  1. FORTEO [Suspect]
     Indication: OSTEOPOROSIS
     Dosage: 20 UG, DAILY (1/D)
     Dates: start: 20100401
  2. VITAMINS [Concomitant]
  3. FORTEO [Suspect]
     Dosage: 20 UG, QD
  4. IBUPROFEN [Concomitant]

REACTIONS (12)
  - LUMBAR SPINAL STENOSIS [None]
  - MALAISE [None]
  - FATIGUE [None]
  - DIZZINESS [None]
  - SCIATIC NERVE NEUROPATHY [None]
  - SCOLIOSIS [None]
  - GASTROINTESTINAL INFECTION [None]
  - DEHYDRATION [None]
  - ASTHENIA [None]
  - APPETITE DISORDER [None]
  - BALANCE DISORDER [None]
  - INCORRECT STORAGE OF DRUG [None]
